FAERS Safety Report 7125063-4 (Version None)
Quarter: 2010Q4

REPORT INFORMATION
  Report Type: 
  Country: None (occurrence: None)
  Receive Date: 20101129
  Receipt Date: 20101119
  Transmission Date: 20110411
  Serious: Yes (Other)
  Sender: FDA-Public Use
  Company Number: CA-SANOFI-AVENTIS-2010SA071053

PATIENT
  Age: 58 Year
  Sex: Male

DRUGS (18)
  1. ELOXATIN [Suspect]
     Indication: COLON CANCER
     Route: 041
     Dates: end: 20100414
  2. ELOXATIN [Suspect]
     Route: 041
     Dates: start: 20100501, end: 20100501
  3. ELOXATIN [Suspect]
     Route: 041
     Dates: start: 20100521, end: 20100521
  4. LEUCOVORIN [Concomitant]
     Indication: COLON CANCER
     Route: 042
     Dates: start: 20100414, end: 20100414
  5. LEUCOVORIN [Concomitant]
     Route: 042
     Dates: start: 20100501, end: 20100501
  6. LEUCOVORIN [Concomitant]
     Route: 042
     Dates: start: 20101019, end: 20101019
  7. FLUOROURACIL [Concomitant]
     Route: 040
     Dates: start: 20100414, end: 20100414
  8. FLUOROURACIL [Concomitant]
     Route: 041
     Dates: start: 20100414, end: 20100414
  9. FLUOROURACIL [Concomitant]
     Route: 040
     Dates: start: 20101019, end: 20101019
  10. FLUOROURACIL [Concomitant]
     Route: 041
     Dates: start: 20101019, end: 20101019
  11. IRINOTECAN HCL [Concomitant]
     Indication: COLON CANCER
     Route: 041
     Dates: start: 20101005, end: 20101005
  12. IRINOTECAN HCL [Concomitant]
     Route: 041
     Dates: start: 20101019, end: 20101019
  13. ACTONEL [Concomitant]
  14. COLACE [Concomitant]
  15. STATEX [Concomitant]
  16. CALCIUM/VITAMIN D [Concomitant]
     Route: 048
  17. DECADRON [Concomitant]
     Indication: PREMEDICATION
  18. DECADRON [Concomitant]
     Indication: ANXIETY

REACTIONS (14)
  - DIZZINESS [None]
  - DYSGEUSIA [None]
  - ENCEPHALOPATHY [None]
  - EPISTAXIS [None]
  - ERYTHEMA [None]
  - EXTRAPYRAMIDAL DISORDER [None]
  - FATIGUE [None]
  - MUSCLE SPASMS [None]
  - PAIN IN EXTREMITY [None]
  - PARAESTHESIA [None]
  - POLYNEUROPATHY [None]
  - SENSORY DISTURBANCE [None]
  - TREMOR [None]
  - VOMITING [None]
